FAERS Safety Report 14798737 (Version 1)
Quarter: 2018Q2

REPORT INFORMATION
  Report Type: Spontaneous
  Country: US (occurrence: US)
  Receive Date: 20180424
  Receipt Date: 20180424
  Transmission Date: 20180711
  Serious: Yes (Hospitalization)
  Sender: FDA-Public Use
  Company Number: US-PFIZER INC-2018163929

PATIENT
  Age: 40 Year
  Sex: Female

DRUGS (1)
  1. BESPONSA [Suspect]
     Active Substance: INOTUZUMAB OZOGAMICIN
     Indication: ACUTE LYMPHOCYTIC LEUKAEMIA
     Dosage: 100 MG, CYCLIC (DAY 1, DAY 8, AND DAY 15)
     Dates: start: 20180406

REACTIONS (2)
  - Neutropenia [Unknown]
  - Sepsis [Unknown]
